FAERS Safety Report 7585473-8 (Version None)
Quarter: 2011Q3

REPORT INFORMATION
  Report Type: 
  Country: None (occurrence: None)
  Receive Date: 20110701
  Receipt Date: 20110620
  Transmission Date: 20111222
  Serious: Yes (Other)
  Sender: FDA-Public Use
  Company Number: US-BAYER-2010-004483

PATIENT
  Sex: Female

DRUGS (7)
  1. YAZ [Suspect]
     Indication: ENDOMETRIAL HYPERTROPHY
  2. KLONOPIN [Concomitant]
     Indication: CONVULSION
     Dosage: UNK
     Dates: start: 19980101
  3. YAZ [Suspect]
     Indication: PREMENSTRUAL SYNDROME
     Dosage: UNK
     Route: 048
     Dates: start: 20080213, end: 20081210
  4. YAZ [Suspect]
     Indication: MENSTRUATION IRREGULAR
  5. YAZ [Suspect]
     Indication: DYSMENORRHOEA
  6. CARDIZEM CD [Concomitant]
  7. LEVOTHYROXINE SODIUM [Concomitant]

REACTIONS (4)
  - THROMBOSIS [None]
  - DEEP VEIN THROMBOSIS [None]
  - PULMONARY EMBOLISM [None]
  - PAIN [None]
